FAERS Safety Report 9379187 (Version 2)
Quarter: 2013Q3

REPORT INFORMATION
  Report Type: Report from Study
  Country: US (occurrence: US)
  Receive Date: 20130702
  Receipt Date: 20130705
  Transmission Date: 20140515
  Serious: Yes (Hospitalization)
  Sender: FDA-Public Use
  Company Number: US-JNJFOC-20130617577

PATIENT
  Age: 18 Year
  Sex: Male
  Weight: 72.12 kg

DRUGS (4)
  1. REMICADE [Suspect]
     Indication: CROHN^S DISEASE
     Route: 042
     Dates: start: 20130429
  2. REMICADE [Suspect]
     Indication: CROHN^S DISEASE
     Route: 042
     Dates: start: 200709
  3. ACYCLOVIR [Concomitant]
     Route: 065
  4. PREDNISONE [Concomitant]
     Route: 065

REACTIONS (1)
  - Intestinal obstruction [Recovered/Resolved]
